FAERS Safety Report 4430590-4 (Version None)
Quarter: 2004Q3

REPORT INFORMATION
  Report Type: 
  Country: None (occurrence: None)
  Receive Date: 20040818
  Receipt Date: 20040809
  Transmission Date: 20050211
  Serious: Yes (Hospitalization, Other)
  Sender: FDA-Public Use
  Company Number: 2004050030

PATIENT
  Age: 69 Year
  Sex: Female
  Weight: 75 kg

DRUGS (1)
  1. CARDULAR PP (DOXAZOSIN) [Suspect]
     Indication: HYPERTENSION
     Dosage: 4 MG (4 MG, 1 IN 1 D), ORAL
     Route: 048
     Dates: start: 20010101

REACTIONS (4)
  - ABDOMINAL PAIN [None]
  - INFLAMMATION [None]
  - INTESTINAL PERFORATION [None]
  - PERITONITIS [None]
